FAERS Safety Report 20686069 (Version 1)
Quarter: 2022Q2

REPORT INFORMATION
  Report Type: Spontaneous
  Country: US (occurrence: US)
  Receive Date: 20220407
  Receipt Date: 20220407
  Transmission Date: 20220721
  Serious: No
  Sender: FDA-Public Use
  Company Number: US-JAZZ-2022-US-008807

PATIENT
  Sex: Male

DRUGS (20)
  1. SUNOSI [Suspect]
     Active Substance: SOLRIAMFETOL
     Indication: Product used for unknown indication
     Dosage: UNK
  2. AMLODIPINE BESYLATE [Concomitant]
     Active Substance: AMLODIPINE BESYLATE
     Dosage: 0000
     Dates: start: 20220105
  3. ASPIRIN [Concomitant]
     Active Substance: ASPIRIN
     Dosage: 0000
     Dates: start: 20220105
  4. ATIVAN [Concomitant]
     Active Substance: LORAZEPAM
     Dosage: 0000
     Dates: start: 20220105
  5. BEVESPI AEROSPHERE [Concomitant]
     Active Substance: FORMOTEROL FUMARATE\GLYCOPYRROLATE
     Dosage: 0000
     Dates: start: 20211005
  6. BUPROPION HYDROCHLORIDE [Concomitant]
     Active Substance: BUPROPION HYDROCHLORIDE
     Dosage: 0000
     Dates: start: 20210302
  7. CRESTOR [Concomitant]
     Active Substance: ROSUVASTATIN CALCIUM
     Dosage: 0000
     Dates: start: 20210302
  8. FOLIC ACID\IRON\MINERALS\VITAMINS [Concomitant]
     Active Substance: FOLIC ACID\IRON\MINERALS\VITAMINS
     Dosage: 0000
     Dates: start: 20210302
  9. FENOFIBRATE [Concomitant]
     Active Substance: FENOFIBRATE
     Dosage: 0000
     Dates: start: 20210104
  10. FLOMAX [Concomitant]
     Active Substance: TAMSULOSIN HYDROCHLORIDE
     Dosage: 0000
     Dates: start: 20211005
  11. LIPITOR [Concomitant]
     Active Substance: ATORVASTATIN CALCIUM
     Dosage: 0000
     Dates: start: 20210104
  12. LOSARTAN POTASSIUM [Concomitant]
     Active Substance: LOSARTAN POTASSIUM
     Dosage: 0000
     Dates: start: 20210104
  13. LUNESTA [Concomitant]
     Active Substance: ESZOPICLONE
     Dosage: 0000
     Dates: start: 20211026
  14. MAGNESIUM OXIDE [Concomitant]
     Active Substance: MAGNESIUM OXIDE
     Dosage: 0000
     Dates: start: 20210302
  15. METOPROLOL SUCCINATE [Concomitant]
     Active Substance: METOPROLOL SUCCINATE
     Dosage: 0000
     Dates: start: 20210302
  16. VITAMINS NOS [Concomitant]
     Active Substance: VITAMINS
     Dosage: 0000
     Dates: start: 20210302
  17. OMEPRAZOLE [Concomitant]
     Active Substance: OMEPRAZOLE
     Dosage: 0000
     Dates: start: 20200903
  18. VENTOLIN HFA [Concomitant]
     Active Substance: ALBUTEROL SULFATE
     Dosage: 0000
     Dates: start: 20210622
  19. ZETIA [Concomitant]
     Active Substance: EZETIMIBE
     Dosage: 0000
     Dates: start: 20211224
  20. ZOLOFT [Concomitant]
     Active Substance: SERTRALINE HYDROCHLORIDE
     Dosage: 0000
     Dates: start: 20211224

REACTIONS (1)
  - Drug ineffective [Unknown]
